FAERS Safety Report 19574152 (Version 6)
Quarter: 2024Q2

REPORT INFORMATION
  Report Type: Other
  Country: BR (occurrence: None)
  Receive Date: 20210719
  Receipt Date: 20240424
  Transmission Date: 20240716
  Serious: Yes (Hospitalization)
  Sender: FDA-Public Use
  Company Number: BR-ROCHE-2871702

PATIENT
  Age: 48 Year
  Sex: Female
  Weight: 57 kg

DRUGS (27)
  1. OCRELIZUMAB [Suspect]
     Active Substance: OCRELIZUMAB
     Indication: Primary progressive multiple sclerosis
     Dosage: ON 06/JAN/2021, SHE RECEIVED MOST RECENT DOSE OF STUDY DRUG ADMIN PRIOR AE/SAE 300 MG
     Route: 042
     Dates: start: 20201223, end: 20201223
  2. OCRELIZUMAB [Suspect]
     Active Substance: OCRELIZUMAB
     Route: 042
     Dates: start: 20230125, end: 20230125
  3. OCRELIZUMAB [Suspect]
     Active Substance: OCRELIZUMAB
     Route: 042
     Dates: start: 20210106, end: 20210106
  4. DALFAMPRIDINE [Concomitant]
     Active Substance: DALFAMPRIDINE
     Dosage: SUBSEQUENT DOSE RECEIVED ON 11/MAY/2019
     Route: 048
     Dates: start: 2018
  5. BACLOFEN [Concomitant]
     Active Substance: BACLOFEN
     Route: 048
     Dates: start: 2015
  6. BACLOFEN [Concomitant]
     Active Substance: BACLOFEN
     Dosage: 10 MG, 2 TABLET
     Route: 048
     Dates: start: 20210517, end: 20210525
  7. METHYLPHENIDATE [Concomitant]
     Active Substance: METHYLPHENIDATE
     Route: 048
     Dates: start: 2020
  8. TRAZODONE [Concomitant]
     Active Substance: TRAZODONE HYDROCHLORIDE
     Route: 048
     Dates: start: 20201202
  9. VENLAFAXINE [Concomitant]
     Active Substance: VENLAFAXINE HYDROCHLORIDE
     Route: 048
     Dates: start: 2014
  10. CISPLATIN [Concomitant]
     Active Substance: CISPLATIN
     Dosage: UNKNOWN. ND OTHER
     Route: 042
     Dates: start: 20210329, end: 20210503
  11. TRAMADOL [Concomitant]
     Active Substance: TRAMADOL\TRAMADOL HYDROCHLORIDE
     Route: 042
     Dates: start: 20210518, end: 20210519
  12. VITAMIN C [Concomitant]
     Active Substance: ASCORBIC ACID
     Dates: start: 202003
  13. BIPERIDEN [Concomitant]
     Active Substance: BIPERIDEN
     Route: 065
     Dates: start: 2021
  14. BIPERIDEN [Concomitant]
     Active Substance: BIPERIDEN
     Dosage: 1 TABLET
     Route: 048
     Dates: start: 20210517, end: 20210519
  15. QUETIAPINE [Concomitant]
     Active Substance: QUETIAPINE
     Dates: start: 2021
  16. SOLIFENACIN [Concomitant]
     Active Substance: SOLIFENACIN
     Route: 065
     Dates: start: 2021
  17. BUSPIRONE [Concomitant]
     Active Substance: BUSPIRONE HYDROCHLORIDE
     Route: 065
  18. PANTOPRAZOLE [Concomitant]
     Active Substance: PANTOPRAZOLE
     Dates: start: 2021
  19. PANTOPRAZOLE [Concomitant]
     Active Substance: PANTOPRAZOLE
     Dosage: 1 TABLET
     Route: 048
     Dates: start: 20210523, end: 20210525
  20. VITAMIN B12 [Concomitant]
     Active Substance: CYANOCOBALAMIN
     Indication: Prophylaxis
     Route: 065
     Dates: start: 2021
  21. SALINE [Concomitant]
     Active Substance: SODIUM CHLORIDE
     Route: 042
     Dates: start: 20210516, end: 20210523
  22. DIPYRONE [Concomitant]
     Active Substance: DIPYRONE
     Dosage: 1G/2ML?1 AMPULE
     Route: 042
     Dates: start: 20210517, end: 20210525
  23. BROMOPRIDE [Concomitant]
     Active Substance: BROMOPRIDE
     Dosage: 10MG/2ML, 1 AMPULE
     Route: 042
     Dates: start: 20210516, end: 20210525
  24. CEFEPIME HYDROCHLORIDE [Concomitant]
     Active Substance: CEFEPIME HYDROCHLORIDE
     Dosage: 2 OTHER
     Route: 042
     Dates: start: 20210519, end: 20210526
  25. POTASSIUM CHLORIDE [Concomitant]
     Active Substance: POTASSIUM CHLORIDE
     Dosage: SYRUP
     Route: 048
     Dates: start: 20210519, end: 20210521
  26. MAGNESIUM HYDROXIDE [Concomitant]
     Active Substance: MAGNESIUM HYDROXIDE
     Route: 048
     Dates: start: 20210520, end: 20210522
  27. METHYLCOBALAMIN [Concomitant]
     Active Substance: METHYLCOBALAMIN
     Dosage: 1000MCG
     Route: 060
     Dates: start: 20210524, end: 20210525

REACTIONS (2)
  - Deep vein thrombosis [Recovered/Resolved]
  - Wound infection [Recovered/Resolved]

NARRATIVE: CASE EVENT DATE: 20210515
